FAERS Safety Report 12145545 (Version 3)
Quarter: 2016Q3

REPORT INFORMATION
  Report Type: Report from Study
  Country: HU (occurrence: HU)
  Receive Date: 20160304
  Receipt Date: 20160817
  Transmission Date: 20161109
  Serious: Yes (Hospitalization)
  Sender: FDA-Public Use
  Company Number: HU-JNJFOC-20160203990

PATIENT
  Age: 20 Year
  Sex: Female

DRUGS (1)
  1. STELARA [Suspect]
     Active Substance: USTEKINUMAB
     Indication: PSORIASIS
     Route: 058
     Dates: start: 20151013

REACTIONS (5)
  - Infection [Not Recovered/Not Resolved]
  - Psoriasis [Recovering/Resolving]
  - Tooth infection [Unknown]
  - Arthralgia [Unknown]
  - Streptococcal infection [Not Recovered/Not Resolved]

NARRATIVE: CASE EVENT DATE: 2016
